FAERS Safety Report 7150135-8 (Version None)
Quarter: 2010Q4

REPORT INFORMATION
  Report Type: 
  Country: None (occurrence: None)
  Receive Date: 20101210
  Receipt Date: 20101207
  Transmission Date: 20110411
  Serious: Yes (Death, Hospitalization)
  Sender: FDA-Public Use
  Company Number: FR-SANOFI-AVENTIS-2010SA074172

PATIENT
  Age: 71 Year
  Sex: Male

DRUGS (9)
  1. OXALIPLATIN [Suspect]
     Route: 041
     Dates: start: 20100416, end: 20100416
  2. OXALIPLATIN [Suspect]
     Route: 041
     Dates: start: 20100514, end: 20100514
  3. LEUCOVORIN [Suspect]
     Route: 041
     Dates: start: 20100416, end: 20100416
  4. LEUCOVORIN [Suspect]
     Route: 041
     Dates: start: 20100514, end: 20100514
  5. FLUOROURACIL [Suspect]
     Route: 041
     Dates: start: 20100416, end: 20100416
  6. FLUOROURACIL [Suspect]
     Route: 041
     Dates: start: 20100514, end: 20100514
  7. AVASTIN [Suspect]
     Route: 041
     Dates: start: 20100415, end: 20100415
  8. AVASTIN [Suspect]
     Route: 041
     Dates: start: 20100514, end: 20100514
  9. BLINDED THERAPY [Concomitant]
     Dates: start: 20100415

REACTIONS (2)
  - NEUTROPENIC SEPSIS [None]
  - THROMBOCYTOPENIA [None]
